FAERS Safety Report 7319467-4 (Version None)
Quarter: 2011Q1

REPORT INFORMATION
  Report Type: 
  Country: None (occurrence: None)
  Receive Date: 20110228
  Receipt Date: 20100331
  Transmission Date: 20110831
  Serious: No
  Sender: FDA-Public Use
  Company Number: A0853710A

PATIENT
  Age: 15 Year
  Sex: Female

DRUGS (3)
  1. LAMICTAL [Suspect]
     Dosage: 100MG PER DAY
     Route: 048
     Dates: start: 20100204
  2. EXCEDRIN (MIGRAINE) [Concomitant]
     Indication: HEADACHE
  3. FLONASE [Concomitant]
     Indication: MULTIPLE ALLERGIES
     Route: 045

REACTIONS (2)
  - MENSTRUATION IRREGULAR [None]
  - MEMORY IMPAIRMENT [None]
